FAERS Safety Report 9074776 (Version 1)
Quarter: 2013Q1

REPORT INFORMATION
  Report Type: Spontaneous
  Country: JP (occurrence: JP)
  Receive Date: 20130129
  Receipt Date: 20130129
  Transmission Date: 20140127
  Serious: Yes (Life-Threatening)
  Sender: FDA-Public Use
  Company Number: JP-ASTRAZENECA-2013SE05667

PATIENT
  Age: 55 Year
  Sex: Male

DRUGS (1)
  1. XYLOCAINE [Suspect]
     Dosage: DOSE UNKNOWN
     Route: 065

REACTIONS (2)
  - Anaphylactic shock [Unknown]
  - Urticaria [Unknown]
